FAERS Safety Report 7435822-6 (Version None)
Quarter: 2011Q2

REPORT INFORMATION
  Report Type: 
  Country: None (occurrence: None)
  Receive Date: 20110425
  Receipt Date: 20110413
  Transmission Date: 20111010
  Serious: Yes (Other)
  Sender: FDA-Public Use
  Company Number: DE-ELI_LILLY_AND_COMPANY-DE201104003993

PATIENT
  Sex: Female

DRUGS (2)
  1. ZYPADHERA [Suspect]
     Indication: SCHIZOPHRENIA
     Dosage: 300 MG, OTHER
     Route: 030
     Dates: start: 20101001
  2. ZYPADHERA [Suspect]
     Dosage: 300MG, OTHER
     Route: 030

REACTIONS (3)
  - SLEEP DISORDER [None]
  - ARRHYTHMIA [None]
  - FATIGUE [None]
